FAERS Safety Report 15432630 (Version 2)
Quarter: 2018Q4

REPORT INFORMATION
  Report Type: Spontaneous
  Country: BR (occurrence: BR)
  Receive Date: 20180927
  Receipt Date: 20181008
  Transmission Date: 20190204
  Serious: Yes (Other)
  Sender: FDA-Public Use
  Company Number: BR-CONCORDIA PHARMACEUTICALS INC.-GSH201809-003407

PATIENT
  Age: 50 Year
  Sex: Male
  Weight: 75 kg

DRUGS (2)
  1. PARNATE [Suspect]
     Active Substance: TRANYLCYPROMINE SULFATE
     Indication: MAJOR DEPRESSION
     Dosage: 14 TABLETS OF PARNATE PER DAY
     Route: 048
     Dates: start: 20150508
  2. VENLAFAXINE [Concomitant]
     Active Substance: VENLAFAXINE HYDROCHLORIDE

REACTIONS (7)
  - Therapeutic response unexpected [Unknown]
  - Product prescribing issue [Unknown]
  - Suicidal ideation [Unknown]
  - Panic reaction [Unknown]
  - Weight decreased [Unknown]
  - Prescribed overdose [Not Recovered/Not Resolved]
  - Somnolence [Unknown]
